FAERS Safety Report 8202883-6 (Version None)
Quarter: 2012Q1

REPORT INFORMATION
  Report Type: 
  Country: None (occurrence: None)
  Receive Date: 20120312
  Receipt Date: 20120312
  Transmission Date: 20120608
  Serious: No
  Sender: FDA-Public Use
  Company Number: None

PATIENT
  Age: 33 Year
  Sex: Female
  Weight: 63.502 kg

DRUGS (1)
  1. AMOXICILLIN [Suspect]
     Indication: TOOTH INFECTION
     Dosage: 500 MG
     Route: 048
     Dates: start: 20120309, end: 20120311

REACTIONS (7)
  - LETHARGY [None]
  - PYREXIA [None]
  - FEELING OF BODY TEMPERATURE CHANGE [None]
  - ABDOMINAL DISCOMFORT [None]
  - NAUSEA [None]
  - MUSCULOSKELETAL DISCOMFORT [None]
  - MYALGIA [None]
